FAERS Safety Report 8462671-2 (Version None)
Quarter: 2012Q2

REPORT INFORMATION
  Report Type: 
  Country: None (occurrence: None)
  Receive Date: 20120625
  Receipt Date: 20120625
  Transmission Date: 20120825
  Serious: Yes (Hospitalization, Other)
  Sender: FDA-Public Use
  Company Number: US-PFIZER INC-2010US-33243

PATIENT
  Age: 40 Year
  Sex: Male

DRUGS (9)
  1. PARACETAMOL [Concomitant]
     Dosage: UNK
  2. VERAPAMIL HCL [Suspect]
     Indication: PRODUCT USED FOR UNKNOWN INDICATION
     Dosage: 90 TABLETS OF 240 MG SR, UNK, 21.6 G
     Route: 048
  3. METOPROLOL [Concomitant]
  4. PAROXETINE [Concomitant]
  5. SERTRALINE [Concomitant]
     Dosage: UNK
  6. ZOLPIDEM [Concomitant]
  7. CLONAZEPAM [Concomitant]
  8. VALPROIC ACID [Concomitant]
  9. CHLORDIAZEPOXIDE [Concomitant]

REACTIONS (2)
  - SUICIDE ATTEMPT [None]
  - OVERDOSE [None]
